FAERS Safety Report 6670098-9 (Version None)
Quarter: 2010Q2

REPORT INFORMATION
  Report Type: 
  Country: None (occurrence: None)
  Receive Date: 20100406
  Receipt Date: 20100222
  Transmission Date: 20101027
  Serious: No
  Sender: FDA-Public Use
  Company Number: US-ALLERGAN-1002326US

PATIENT
  Age: 40 Year
  Sex: Female

DRUGS (2)
  1. LATISSE [Suspect]
     Indication: GROWTH OF EYELASHES
     Dosage: 1 GTT, QHS
     Dates: start: 20100216
  2. LATISSE [Suspect]
     Indication: HAIR GROWTH ABNORMAL

REACTIONS (9)
  - ABDOMINAL PAIN UPPER [None]
  - CHILLS [None]
  - EYELID OEDEMA [None]
  - HAIR DISORDER [None]
  - INFLUENZA [None]
  - NAUSEA [None]
  - POSTNASAL DRIP [None]
  - PYREXIA [None]
  - VOMITING [None]
